FAERS Safety Report 7734471 (Version 6)
Quarter: 2014Q2

REPORT INFORMATION
  Report Type: Spontaneous
  Country: US (occurrence: US)
  Receive Date: 20101223
  Receipt Date: 20140509
  Transmission Date: 20141212
  Serious: Yes (Other)
  Sender: FDA-Public Use
  Company Number: US-BAYER-2010-004324

PATIENT
  Age: 20 Year
  Sex: Female

DRUGS (8)
  1. YASMIN [Suspect]
     Indication: PRODUCT USED FOR UNKNOWN INDICATION
     Dosage: UNK
     Dates: start: 2001, end: 2003
  2. YASMIN [Suspect]
     Indication: PRODUCT USED FOR UNKNOWN INDICATION
     Dosage: UNK
     Dates: start: 20030101, end: 20031231
  3. YAZ [Suspect]
     Indication: PRODUCT USED FOR UNKNOWN INDICATION
  4. MEPERGAN FORTIS [Concomitant]
  5. PERCOCET [Concomitant]
  6. ORTHO-TRI-CYCLEN LO [Concomitant]
  7. PROZAC [Concomitant]
  8. ORTHO TRI-CYCLEN [Concomitant]

REACTIONS (9)
  - Deep vein thrombosis [None]
  - Gallbladder disorder [None]
  - Cholecystitis chronic [None]
  - Biliary dyskinesia [None]
  - Pain [None]
  - Injury [None]
  - Emotional distress [None]
  - Anxiety [None]
  - General physical health deterioration [None]
